FAERS Safety Report 19817235 (Version 1)
Quarter: 2021Q3

REPORT INFORMATION
  Report Type: Spontaneous
  Country: NL (occurrence: US)
  Receive Date: 20210910
  Receipt Date: 20210910
  Transmission Date: 20211014
  Serious: Yes (Hospitalization, Other)
  Sender: FDA-Public Use
  Company Number: US-ELI_LILLY_AND_COMPANY-US202109002536

PATIENT
  Age: 50 Year
  Sex: Male

DRUGS (1)
  1. FLUOXETINE HYDROCHLORIDE. [Suspect]
     Active Substance: FLUOXETINE HYDROCHLORIDE
     Indication: DEPRESSION
     Dosage: UNK UNK, UNKNOWN
     Route: 065

REACTIONS (7)
  - Mast cell activation syndrome [Recovering/Resolving]
  - Colitis [Recovering/Resolving]
  - Thrombocytopenia [Recovering/Resolving]
  - Duodenitis [Recovering/Resolving]
  - Hepatic steatosis [Recovering/Resolving]
  - Anaemia [Recovering/Resolving]
  - Pleural effusion [Recovering/Resolving]
